FAERS Safety Report 5067941-6 (Version None)
Quarter: 2006Q3

REPORT INFORMATION
  Report Type: 
  Country: None (occurrence: None)
  Receive Date: 20060710
  Receipt Date: 20060412
  Transmission Date: 20061208
  Serious: Yes (Other)
  Sender: FDA-Public Use
  Company Number: US-JNJFOC-20060403283

PATIENT
  Age: 17 Year
  Sex: Male

DRUGS (1)
  1. MOTRIN IB [Suspect]
     Indication: TOOTHACHE
     Dosage: 400 MG, 2 IN 1 DAY, ORAL
     Route: 048
     Dates: start: 20060411, end: 20060411

REACTIONS (2)
  - DYSPNOEA [None]
  - SWELLING FACE [None]
